FAERS Safety Report 6063805-X (Version None)
Quarter: 2009Q1

REPORT INFORMATION
  Report Type: 
  Country: None (occurrence: None)
  Receive Date: 20090204
  Receipt Date: 20090126
  Transmission Date: 20090719
  Serious: Yes (Hospitalization, Other)
  Sender: FDA-Public Use
  Company Number: JP-JNJFOC-20081206500

PATIENT
  Age: 83 Year
  Sex: Male

DRUGS (7)
  1. CRAVIT [Suspect]
     Indication: PNEUMONIA
     Route: 048
  2. VITAMEDIN [Suspect]
     Indication: HYPOVITAMINOSIS
     Route: 048
  3. BERIZYM [Concomitant]
     Route: 048
  4. FOIPAN [Concomitant]
     Route: 065
  5. PL [Concomitant]
     Indication: NASOPHARYNGITIS
     Route: 065
  6. NORVASC [Concomitant]
     Route: 065
  7. TANATRIL [Concomitant]
     Route: 065

REACTIONS (1)
  - LUNG DISORDER [None]
